FAERS Safety Report 10065968 (Version 2)
Quarter: 2014Q2

REPORT INFORMATION
  Report Type: Spontaneous
  Country: US (occurrence: US)
  Receive Date: 20140408
  Receipt Date: 20140408
  Transmission Date: 20141212
  Serious: No
  Sender: FDA-Public Use
  Company Number: US-ASTELLAS-2014US001094

PATIENT
  Sex: Male
  Weight: 79 kg

DRUGS (2)
  1. MYRBETRIQ [Suspect]
     Indication: NOCTURIA
     Dosage: 25 MG, UID/QD
     Route: 048
     Dates: start: 20131130, end: 20131221
  2. MYRBETRIQ [Suspect]
     Indication: HYPERTONIC BLADDER

REACTIONS (3)
  - Product size issue [Unknown]
  - Dysphagia [Not Recovered/Not Resolved]
  - Dizziness [Not Recovered/Not Resolved]
